FAERS Safety Report 9787686 (Version 1)
Quarter: 2013Q4

REPORT INFORMATION
  Report Type: Spontaneous
  Country: SA (occurrence: None)
  Receive Date: 20131226
  Receipt Date: 20131226
  Transmission Date: 20140711
  Serious: Yes (Other)
  Sender: FDA-Public Use
  Company Number: FK201305459

PATIENT
  Age: 55 Year
  Sex: Female

DRUGS (3)
  1. METHOTREXATE [Suspect]
     Indication: ARTHRITIS
     Dates: start: 201112, end: 201209
  2. FOLIC ACID [Concomitant]
  3. PREDNISOLONE [Concomitant]

REACTIONS (4)
  - Polyarthritis [None]
  - Mycobacterium avium complex infection [None]
  - Mycobacterium abscessus infection [None]
  - Drug hypersensitivity [None]
